FAERS Safety Report 6835618-X (Version None)
Quarter: 2010Q3

REPORT INFORMATION
  Report Type: 
  Country: None (occurrence: None)
  Receive Date: 20100713
  Receipt Date: 20100705
  Transmission Date: 20110219
  Serious: Yes (Other)
  Sender: FDA-Public Use
  Company Number: GB-JNJFOC-20100503949

PATIENT
  Sex: Female

DRUGS (1)
  1. REMICADE [Suspect]
     Indication: RHEUMATOID ARTHRITIS
     Dosage: STARTED INFLIXIMAB 3 YEARS AGO (DATE AND FREQUENCY UNSPECIFIED)
     Route: 042

REACTIONS (1)
  - METASTATIC SQUAMOUS CELL CARCINOMA [None]
